FAERS Safety Report 14530101 (Version 1)
Quarter: 2018Q1

REPORT INFORMATION
  Report Type: Other
  Country: FR (occurrence: FR)
  Receive Date: 20180214
  Receipt Date: 20180214
  Transmission Date: 20180509
  Serious: Yes (Other)
  Sender: FDA-Public Use
  Company Number: FR-GLENMARK PHARMACEUTICALS-2018GMK031790

PATIENT

DRUGS (6)
  1. CLOPIDOGREL                        /01220704/ [Suspect]
     Active Substance: CLOPIDOGREL BESILATE
     Indication: MACROANGIOPATHY
     Dosage: UNK
     Route: 065
  2. TN [Suspect]
     Active Substance: TROLNITRATE
     Indication: DIABETES MELLITUS
     Dosage: 55 UT, UNK, MORNING AND NIGHT
     Route: 065
  3. METFORMIN HYDROCHLORIDE. [Suspect]
     Active Substance: METFORMIN HYDROCHLORIDE
     Indication: PRODUCT USED FOR UNKNOWN INDICATION
     Dosage: UNK
     Route: 065
  4. TN [Concomitant]
     Indication: PITUITARY TUMOUR BENIGN
     Dosage: UNK
     Route: 065
  5. TN [Concomitant]
     Dosage: 120 MG, UNK
     Route: 065
  6. ATORVASTATIN [Suspect]
     Active Substance: ATORVASTATIN
     Indication: MACROANGIOPATHY
     Dosage: UNK
     Route: 065

REACTIONS (1)
  - Vitreous haemorrhage [Recovered/Resolved with Sequelae]

NARRATIVE: CASE EVENT DATE: 2016
